FAERS Safety Report 18903260 (Version 1)
Quarter: 2021Q1

REPORT INFORMATION
  Report Type: Spontaneous
  Country: US (occurrence: US)
  Receive Date: 20210216
  Receipt Date: 20210216
  Transmission Date: 20210420
  Serious: Yes (Hospitalization)
  Sender: FDA-Public Use
  Company Number: None

PATIENT
  Age: 69 Year
  Sex: Male
  Weight: 76 kg

DRUGS (3)
  1. CARBOPLATIN 206.4 MG [Suspect]
     Active Substance: CARBOPLATIN
     Indication: OESOPHAGEAL CARCINOMA
     Route: 042
     Dates: start: 20210208
  2. RADIATION THERAPY IMRT [Concomitant]
  3. PACLITAXEL 96.5 MG [Suspect]
     Active Substance: PACLITAXEL
     Indication: OESOPHAGEAL CARCINOMA
     Route: 042
     Dates: start: 20210208

REACTIONS (4)
  - Immunodeficiency [None]
  - Respiratory tract infection [None]
  - Pleural effusion [None]
  - Atrial fibrillation [None]

NARRATIVE: CASE EVENT DATE: 20210211
